FAERS Safety Report 16396967 (Version 1)
Quarter: 2019Q2

REPORT INFORMATION
  Report Type: Spontaneous
  Country: JP (occurrence: JP)
  Receive Date: 20190606
  Receipt Date: 20190606
  Transmission Date: 20190711
  Serious: Yes (Hospitalization)
  Sender: FDA-Public Use
  Company Number: JP-SCIEGEN PHARMACEUTICALS INC-2019SCILIT00190

PATIENT
  Age: 67 Year
  Sex: Female

DRUGS (2)
  1. CLOPIDOGREL [Suspect]
     Active Substance: CLOPIDOGREL BISULFATE
  2. BAYASPIRIN [Suspect]
     Active Substance: ASPIRIN

REACTIONS (2)
  - Extradural haematoma [Recovered/Resolved]
  - Brown-Sequard syndrome [Recovered/Resolved]
